FAERS Safety Report 6386392-5 (Version None)
Quarter: 2009Q3

REPORT INFORMATION
  Report Type: 
  Country: None (occurrence: None)
  Receive Date: 20090930
  Receipt Date: 20090930
  Transmission Date: 20100115
  Serious: Yes (Other)
  Sender: FDA-Public Use
  Company Number: None

PATIENT
  Age: 60 Year
  Sex: Female
  Weight: 72.5755 kg

DRUGS (1)
  1. ZICAM [Suspect]
     Indication: NASOPHARYNGITIS
     Dosage: DOSAGE ON PACKAGE FREQUENCY ON LABEL
     Dates: start: 20080320, end: 20080404

REACTIONS (2)
  - ANOSMIA [None]
  - HYPOSMIA [None]
